FAERS Safety Report 15650833 (Version 1)
Quarter: 2018Q4

REPORT INFORMATION
  Report Type: Spontaneous
  Country: US (occurrence: US)
  Receive Date: 20181123
  Receipt Date: 20181123
  Transmission Date: 20190205
  Serious: No
  Sender: FDA-Public Use
  Company Number: US-EMD SERONO-9054180

PATIENT
  Age: 63 Year
  Sex: Female

DRUGS (1)
  1. REBIF [Suspect]
     Active Substance: INTERFERON BETA-1A
     Indication: MULTIPLE SCLEROSIS
     Route: 058
     Dates: start: 20161010

REACTIONS (4)
  - White blood cell count decreased [Unknown]
  - Lethargy [Unknown]
  - Depression [Unknown]
  - Anaemia [Unknown]

NARRATIVE: CASE EVENT DATE: 20181120
